FAERS Safety Report 14027941 (Version 1)
Quarter: 2017Q3

REPORT INFORMATION
  Report Type: Spontaneous
  Country: US (occurrence: US)
  Receive Date: 20170929
  Receipt Date: 20170929
  Transmission Date: 20171128
  Serious: No
  Sender: FDA-Public Use
  Company Number: US-LUNDBECK-DKLU2031829

PATIENT
  Sex: Male

DRUGS (3)
  1. NORTHERA [Suspect]
     Active Substance: DROXIDOPA
     Indication: ORTHOSTATIC HYPOTENSION
     Dosage: WEEK 1
     Route: 048
     Dates: start: 201703, end: 201704
  2. NORTHERA [Suspect]
     Active Substance: DROXIDOPA
     Dosage: WEEK 3
     Route: 048
     Dates: start: 201703, end: 201704
  3. NORTHERA [Suspect]
     Active Substance: DROXIDOPA
     Dosage: WEEK 2
     Route: 048
     Dates: start: 201703, end: 201704

REACTIONS (1)
  - Drug hypersensitivity [Unknown]
